FAERS Safety Report 16531013 (Version 1)
Quarter: 2019Q3

REPORT INFORMATION
  Report Type: Report from Study
  Country: IN (occurrence: IN)
  Receive Date: 20190704
  Receipt Date: 20190704
  Transmission Date: 20191004
  Serious: Yes (Other)
  Sender: FDA-Public Use
  Company Number: PHHY2019IN152076

PATIENT
  Age: 47 Year
  Sex: Male

DRUGS (1)
  1. TASIGNA [Suspect]
     Active Substance: NILOTINIB
     Indication: CHRONIC MYELOID LEUKAEMIA
     Dosage: 300 MG, BID
     Route: 065
     Dates: start: 20140909, end: 20190421

REACTIONS (1)
  - Myocardial infarction [Not Recovered/Not Resolved]

NARRATIVE: CASE EVENT DATE: 20190421
